FAERS Safety Report 24650654 (Version 2)
Quarter: 2025Q1

REPORT INFORMATION
  Report Type: Spontaneous
  Country: IL (occurrence: IL)
  Receive Date: 20241122
  Receipt Date: 20250203
  Transmission Date: 20250408
  Serious: Yes (Death, Life-Threatening, Other)
  Sender: MERCK
  Company Number: IL-009507513-2411ISR007489

PATIENT
  Age: 54 Year
  Sex: Male

DRUGS (1)
  1. KEYTRUDA [Suspect]
     Active Substance: PEMBROLIZUMAB
     Indication: Non-small cell lung cancer
     Dates: start: 20210315, end: 202205

REACTIONS (1)
  - Malignant neoplasm progression [Fatal]
